FAERS Safety Report 9797835 (Version 2)
Quarter: 2014Q1

REPORT INFORMATION
  Report Type: Report from Study
  Country: CO (occurrence: CO)
  Receive Date: 20140106
  Receipt Date: 20140304
  Transmission Date: 20141002
  Serious: Yes (Death, Hospitalization)
  Sender: FDA-Public Use
  Company Number: CO-SA-2013SA135191

PATIENT
  Age: 78 Year
  Sex: Female

DRUGS (6)
  1. LANTUS [Suspect]
     Indication: DIABETES MELLITUS
     Dosage: DOSE:14 UNIT(S)
     Route: 058
     Dates: start: 201304, end: 20140117
  2. ENALAPRIL [Concomitant]
     Indication: HYPERTENSION
     Route: 048
     Dates: end: 20140117
  3. AMIODARONE [Concomitant]
     Indication: CARDIOMEGALY
     Route: 048
     Dates: end: 20140117
  4. SPIRONOLACTONE [Concomitant]
     Indication: RENAL FAILURE CHRONIC
     Route: 048
     Dates: end: 20140117
  5. LOVASTATIN [Concomitant]
     Indication: DYSLIPIDAEMIA
     Route: 048
     Dates: end: 20140117
  6. BECLOMETASONE [Concomitant]
     Indication: CHRONIC OBSTRUCTIVE PULMONARY DISEASE
     Route: 055
     Dates: end: 20140117

REACTIONS (4)
  - Decubitus ulcer [Recovering/Resolving]
  - Hip fracture [Fatal]
  - Fall [Fatal]
  - Blood glucose fluctuation [Unknown]
